FAERS Safety Report 5082036-3 (Version None)
Quarter: 2006Q3

REPORT INFORMATION
  Report Type: 
  Country: None (occurrence: None)
  Receive Date: 20060811
  Receipt Date: 20060801
  Transmission Date: 20061208
  Serious: Yes (Other)
  Sender: FDA-Public Use
  Company Number: 2006041605

PATIENT
  Age: 54 Year
  Sex: Male
  Weight: 70 kg

DRUGS (7)
  1. CABERGOLINE [Suspect]
     Indication: RESTLESS LEGS SYNDROME
     Dosage: 1 MG (1 IN 1 D), ORAL
     Route: 048
     Dates: start: 20050201, end: 20060314
  2. CARVEDILOL [Concomitant]
  3. ALL OTHER THERAPEUTIC PRODUCTS [Concomitant]
  4. DIOVAN HCT [Concomitant]
  5. SPIRONOLACTONE [Concomitant]
  6. ZOCOR [Concomitant]
  7. TORSEMIDE [Concomitant]

REACTIONS (6)
  - AORTIC ARTERIOSCLEROSIS [None]
  - ASTHENIA [None]
  - DILATATION VENTRICULAR [None]
  - EJECTION FRACTION DECREASED [None]
  - MITRAL VALVE INCOMPETENCE [None]
  - MITRAL VALVE SCLEROSIS [None]
